FAERS Safety Report 4976173-9 (Version None)
Quarter: 2006Q2

REPORT INFORMATION
  Report Type: 
  Country: None (occurrence: None)
  Receive Date: 20060412
  Receipt Date: 20060327
  Transmission Date: 20061013
  Serious: No
  Sender: FDA-Public Use
  Company Number: 223754

PATIENT
  Age: 53 Year
  Sex: Female

DRUGS (4)
  1. HERCEPTIN [Suspect]
     Indication: BREAST CANCER METASTATIC
     Dosage: 150 MG, INTRAVENOUS
     Route: 042
     Dates: start: 20040615
  2. AVASTIN [Suspect]
     Indication: BREAST CANCER METASTATIC
     Dosage: 25 MG/ML, INTRAVENOUS
     Route: 042
     Dates: start: 20050615
  3. DOXORUBICIN HCL [Suspect]
     Indication: BREAST CANCER METASTATIC
     Dosage: 20 MG, Q14D, INTRAVENOUS
     Route: 042
  4. TAXOTERE [Suspect]
     Indication: BREAST CANCER METASTATIC
     Dosage: INTRAVENOUS
     Route: 042

REACTIONS (5)
  - BULLOUS LUNG DISEASE [None]
  - FIBROSIS [None]
  - LUNG DISORDER [None]
  - METASTASIS [None]
  - PNEUMOTHORAX [None]
